FAERS Safety Report 8269581-4 (Version None)
Quarter: 2012Q2

REPORT INFORMATION
  Report Type: 
  Country: None (occurrence: None)
  Receive Date: 20120410
  Receipt Date: 20120330
  Transmission Date: 20120825
  Serious: Yes (Hospitalization)
  Sender: FDA-Public Use
  Company Number: DE-BRISTOL-MYERS SQUIBB COMPANY-16503914

PATIENT
  Age: 74 Year
  Sex: Female
  Weight: 77 kg

DRUGS (5)
  1. CETUXIMAB [Suspect]
     Indication: HEAD AND NECK CANCER
     Route: 042
     Dates: start: 20120322
  2. LOSARTAN POTASSIUM [Concomitant]
     Route: 048
  3. DOCETAXEL [Suspect]
     Indication: HEAD AND NECK CANCER
     Route: 042
     Dates: start: 20120321
  4. MAGNESIUM VERLA [Concomitant]
  5. CISPLATIN [Suspect]
     Indication: HEAD AND NECK CANCER
     Route: 042
     Dates: start: 20120321

REACTIONS (3)
  - DIARRHOEA [None]
  - DYSPHAGIA [None]
  - DEHYDRATION [None]
